FAERS Safety Report 8157693 (Version 6)
Quarter: 2014Q2

REPORT INFORMATION
  Report Type: Spontaneous
  Country: US (occurrence: US)
  Receive Date: 20110927
  Receipt Date: 20140416
  Transmission Date: 20141212
  Serious: Yes (Hospitalization)
  Sender: FDA-Public Use
  Company Number: US-ASTRAZENECA-2011SE34605

PATIENT
  Age: 60 Year
  Sex: Female
  Weight: 58.1 kg

DRUGS (14)
  1. SEROQUEL [Suspect]
     Indication: SLEEP DISORDER
     Route: 048
     Dates: start: 1998
  2. SEROQUEL [Suspect]
     Indication: SLEEP DISORDER
     Route: 048
  3. SEROQUEL [Suspect]
     Indication: SLEEP DISORDER
     Route: 048
     Dates: start: 2009
  4. FLUDROCORT [Concomitant]
     Dates: start: 2011
  5. LAMICTAL [Concomitant]
     Dates: start: 2010
  6. SYNTHROID [Concomitant]
     Dosage: 137 MCS
     Dates: start: 2002
  7. VITAMIN D [Concomitant]
     Dosage: 5000 UNITS
     Dates: start: 2002
  8. VITAMIN B12 SHOT [Concomitant]
     Dosage: 1000 UNITS
     Dates: start: 1994
  9. ALENDRONATE SODIUM [Concomitant]
     Dates: start: 2011
  10. DYCYCLOMINE [Concomitant]
     Dates: start: 2006
  11. MELAXOCAM [Concomitant]
     Dates: start: 2011
  12. PENNSAID [Concomitant]
     Route: 061
     Dates: start: 2009
  13. PERCOCET [Concomitant]
     Dosage: 10/325 MG, DAILY
     Dates: start: 2009
  14. EFFEXOR [Concomitant]

REACTIONS (10)
  - Fall [Unknown]
  - Upper limb fracture [Unknown]
  - Lower limb fracture [Unknown]
  - Insomnia [Recovered/Resolved]
  - Neuropathy peripheral [Recovering/Resolving]
  - Herpes zoster [Unknown]
  - Influenza [Unknown]
  - Weight decreased [Unknown]
  - Off label use [Unknown]
  - Drug dose omission [Unknown]
